FAERS Safety Report 6784833-2 (Version None)
Quarter: 2010Q2

REPORT INFORMATION
  Report Type: 
  Country: None (occurrence: None)
  Receive Date: 20100622
  Receipt Date: 20090317
  Transmission Date: 20101027
  Serious: Yes (Death, Life-Threatening)
  Sender: FDA-Public Use
  Company Number: GB-GENZYME-CLOF-1000443

PATIENT
  Sex: Male

DRUGS (9)
  1. EVOLTRA [Suspect]
     Indication: ACUTE LYMPHOCYTIC LEUKAEMIA RECURRENT
     Dosage: 40 MG/M2, QDX5
     Route: 042
     Dates: start: 20090105, end: 20090109
  2. CYCLOPHOSPHAMIDE [Suspect]
     Indication: ACUTE LYMPHOCYTIC LEUKAEMIA RECURRENT
     Dosage: 300 MG/M2, QDX5
     Route: 042
     Dates: start: 20090105, end: 20090109
  3. ETOPOSIDE [Suspect]
     Indication: ACUTE LYMPHOCYTIC LEUKAEMIA RECURRENT
     Dosage: 100 MG/M2, QDX5
     Route: 042
     Dates: start: 20090105, end: 20090109
  4. OMEPRAZOLE [Concomitant]
     Indication: VOMITING
     Dosage: 20 MG, UNK
     Route: 042
     Dates: start: 20090103, end: 20090131
  5. METOCLOPRAMIDE [Concomitant]
     Indication: NAUSEA
     Dosage: 5 MG, UNK
     Route: 048
     Dates: start: 20090101, end: 20090131
  6. LORAZEPAM [Concomitant]
     Indication: ANTIEMETIC SUPPORTIVE CARE
     Dosage: 0.5 MG, UNK
     Route: 048
     Dates: start: 20090106, end: 20090111
  7. DEXAMETHASONE ACETATE [Concomitant]
     Indication: DRUG USE FOR UNKNOWN INDICATION
     Dosage: 6 MG, UNK
     Dates: start: 20090101, end: 20090108
  8. LOPERAMIDE [Concomitant]
     Indication: DIARRHOEA
     Dosage: 2 MG, PRN
     Route: 048
     Dates: start: 20090107, end: 20090113
  9. LACTULOSE [Concomitant]
     Indication: CONSTIPATION
     Dosage: 10 UNK, UNK
     Route: 048
     Dates: start: 20081231, end: 20090107

REACTIONS (2)
  - NEUTROPENIC COLITIS [None]
  - SEPSIS [None]
